FAERS Safety Report 7802244-5 (Version None)
Quarter: 2011Q4

REPORT INFORMATION
  Report Type: 
  Country: None (occurrence: None)
  Receive Date: 20111007
  Receipt Date: 20111007
  Transmission Date: 20120403
  Serious: Yes (Other)
  Sender: FDA-Public Use
  Company Number: JP-JNJFOC-20111000734

PATIENT
  Sex: Female

DRUGS (2)
  1. BIO-THREE [Concomitant]
     Indication: GASTROINTESTINAL DISORDER THERAPY
     Route: 048
  2. LOPERAMIDE HCL [Suspect]
     Indication: DIARRHOEA
     Dosage: 1MG THREE TIMES IN A DAY
     Route: 048

REACTIONS (2)
  - FREQUENT BOWEL MOVEMENTS [None]
  - DRUG INEFFECTIVE [None]
